FAERS Safety Report 12701059 (Version 1)
Quarter: 2016Q3

REPORT INFORMATION
  Report Type: Report from Study
  Country: CA (occurrence: CA)
  Receive Date: 20160831
  Receipt Date: 20160831
  Transmission Date: 20161109
  Serious: Yes (Hospitalization, Other)
  Sender: FDA-Public Use
  Company Number: CA-AMGEN-CANSL2016052051

PATIENT
  Age: 63 Year
  Sex: Female

DRUGS (9)
  1. FUROSEMIDE. [Concomitant]
     Active Substance: FUROSEMIDE
     Dosage: 40 MG, UNK
  2. ENBREL [Suspect]
     Active Substance: ETANERCEPT
     Indication: PSORIATIC ARTHROPATHY
  3. NADOLOL. [Concomitant]
     Active Substance: NADOLOL
     Dosage: 40 MG, UNK
  4. TYLENOL [Concomitant]
     Active Substance: ACETAMINOPHEN
     Indication: ARTHRITIS
     Dosage: UNK
  5. SPIRONOLACTONE. [Concomitant]
     Active Substance: SPIRONOLACTONE
     Dosage: 1 (TAB) DF, PER DAY
  6. METRONIDAZOLE. [Concomitant]
     Active Substance: METRONIDAZOLE
     Dosage: 250 MG, UNK
  7. ENBREL [Suspect]
     Active Substance: ETANERCEPT
     Indication: RHEUMATOID ARTHRITIS
     Dosage: 50 MG, UNK
     Route: 065
     Dates: start: 20140514, end: 201602
  8. DILAUDID [Suspect]
     Active Substance: HYDROMORPHONE HYDROCHLORIDE
     Indication: LOWER LIMB FRACTURE
     Dosage: UNK
     Route: 065
     Dates: start: 2016
  9. PANTOPRAZOLE [Concomitant]
     Active Substance: PANTOPRAZOLE SODIUM
     Dosage: 1 (TAB) DF , A DAY

REACTIONS (8)
  - Cholecystectomy [Recovered/Resolved]
  - Sepsis [Recovered/Resolved]
  - Skin infection [Unknown]
  - Fall [Unknown]
  - Drug hypersensitivity [Unknown]
  - Impaired healing [Recovering/Resolving]
  - Myositis [Unknown]
  - Tibia fracture [Unknown]

NARRATIVE: CASE EVENT DATE: 2016
